FAERS Safety Report 17142771 (Version 1)
Quarter: 2019Q4

REPORT INFORMATION
  Report Type: Spontaneous
  Country: FR (occurrence: FR)
  Receive Date: 20191211
  Receipt Date: 20191211
  Transmission Date: 20200122
  Serious: Yes (Other)
  Sender: FDA-Public Use
  Company Number: NVSC2019FR045430

PATIENT
  Age: 80 Year
  Sex: Female

DRUGS (1)
  1. COTAREG [Suspect]
     Active Substance: HYDROCHLOROTHIAZIDE\VALSARTAN
     Indication: HYPERTENSION
     Dosage: 1 DF, QD
     Route: 048

REACTIONS (2)
  - Skin cancer [Recovered/Resolved]
  - Keratoacanthoma [Recovered/Resolved]

NARRATIVE: CASE EVENT DATE: 20190111
